FAERS Safety Report 9328845 (Version 2)
Quarter: 2013Q2

REPORT INFORMATION
  Report Type: Spontaneous
  Country: IN (occurrence: IN)
  Receive Date: 20130604
  Receipt Date: 20130610
  Transmission Date: 20140414
  Serious: Yes (Death)
  Sender: FDA-Public Use
  Company Number: IN-BRISTOL-MYERS SQUIBB COMPANY-18939934

PATIENT
  Age: 6 Decade
  Sex: Female

DRUGS (1)
  1. SPRYCEL [Suspect]

REACTIONS (4)
  - Malignant neoplasm progression [Fatal]
  - Thrombocytopenia [Unknown]
  - Arthralgia [Unknown]
  - Eating disorder [Unknown]
